FAERS Safety Report 8106589-3 (Version None)
Quarter: 2011Q4

REPORT INFORMATION
  Report Type: 
  Country: None (occurrence: None)
  Receive Date: 20111222
  Receipt Date: 20111129
  Transmission Date: 20120403
  Serious: Yes (Death, Hospitalization)
  Sender: FDA-Public Use
  Company Number: UTC-012518

PATIENT
  Age: 67 Year
  Sex: Female
  Weight: 91.8 kg

DRUGS (2)
  1. TYVASO [Suspect]
  2. TYVASO [Suspect]
     Indication: PULMONARY ARTERIAL HYPERTENSION
     Dosage: 18-54 MICROGRAMS (4 IN 1 D),INHALATION
     Route: 055
     Dates: start: 20091117

REACTIONS (3)
  - FLUID RETENTION [None]
  - PULMONARY ARTERIAL HYPERTENSION [None]
  - OXYGEN SATURATION DECREASED [None]
